FAERS Safety Report 5574463-2 (Version None)
Quarter: 2007Q4

REPORT INFORMATION
  Report Type: 
  Country: None (occurrence: None)
  Receive Date: 20071226
  Receipt Date: 20071226
  Transmission Date: 20080405
  Serious: Yes (Other)
  Sender: FDA-Public Use
  Company Number: None

PATIENT
  Sex: Female
  Weight: 56.9 kg

DRUGS (1)
  1. OMALIZUMAB 150 MG [Suspect]
     Indication: ASTHMA
     Dosage: SQ
     Route: 058
     Dates: start: 20071128, end: 20071128

REACTIONS (2)
  - THROAT TIGHTNESS [None]
  - WHEEZING [None]
